FAERS Safety Report 23343470 (Version 1)
Quarter: 2023Q4

REPORT INFORMATION
  Report Type: Report from Study
  Country: IT (occurrence: IT)
  Receive Date: 20231227
  Receipt Date: 20231227
  Transmission Date: 20240109
  Serious: Yes (Hospitalization)
  Sender: FDA-Public Use
  Company Number: None

PATIENT
  Age: 82 Year
  Sex: Female
  Weight: 42 kg

DRUGS (9)
  1. RAMIPRIL [Suspect]
     Active Substance: RAMIPRIL
     Indication: Hypertension
     Dosage: 5 MILLIGRAM, QD (DOSAGE: 5, UNITS OF MEASURE: MILLIGRAMS, FREQUENCY OF ADMINISTRATION: DAILY)
     Route: 048
  2. HYDROCHLOROTHIAZIDE\RAMIPRIL [Suspect]
     Active Substance: HYDROCHLOROTHIAZIDE\RAMIPRIL
     Indication: Hypertension
     Dosage: 1 DOSAGE FORM, QD (5/25, UNITS OF MEASURE: MILLIGRAMS, FREQUENCY OF ADMINISTRATION: DAILY)
     Route: 048
  3. LEVOTHYROXINE SODIUM [Concomitant]
     Active Substance: LEVOTHYROXINE SODIUM
     Indication: Hypothyroidism
     Dosage: 1 DOSAGE FORM (DOSAGE: 20/50, UNITS OF MEASURE: MICROGRAMS, ROUTE OF ADMINISTRATION: ORAL)
     Route: 048
  4. GAVISCON [Concomitant]
     Active Substance: ALUMINUM HYDROXIDE\MAGNESIUM CARBONATE
     Indication: Dyspepsia
     Dosage: ROUTE OF ADMINISTRATION: ORAL
     Route: 048
  5. BISOPROLOL FUMARATE [Concomitant]
     Active Substance: BISOPROLOL FUMARATE
     Indication: Hypertension
     Dosage: 1.25 MILLIGRAM (DOSAGE: 1.25, UNITS OF MEASURE: MILLIGRAMS, VIA ADMINISTRATION: ORAL)
     Route: 048
  6. SIMVASTATIN [Concomitant]
     Active Substance: SIMVASTATIN
     Indication: Hypercholesterolaemia
     Dosage: 20 MILLIGRAM (DOSAGE: 20, UNITS OF MEASURE: MILLIGRAMS, VIA ADMINISTRATION: ORAL)
     Route: 048
  7. ASPIRIN [Concomitant]
     Active Substance: ASPIRIN
     Indication: Thrombosis prophylaxis
     Dosage: 100 MILLIGRAM (DOSAGE: 100, UNITS OF MEASURE: MILLIGRAMS, VIA ADMINISTRATION: ORAL)
     Route: 048
  8. MINITRAN [Concomitant]
     Active Substance: NITROGLYCERIN
     Indication: Angina pectoris
     Dosage: 10 MILLIGRAM (DOSAGE: 10, UNITS OF MEASURE: MILLIGRAMS VIA ADMINISTRATION: TRANSDERMIC)
     Route: 062
  9. CLONIDINE HYDROCHLORIDE [Concomitant]
     Active Substance: CLONIDINE HYDROCHLORIDE
     Indication: Hypertension
     Dosage: VIA ADMINISTRATION: TRANSDERMIC
     Route: 062

REACTIONS (6)
  - Hyponatraemia [Recovered/Resolved]
  - Hyponatriuria [Recovered/Resolved]
  - Headache [Recovered/Resolved]
  - Malaise [Recovered/Resolved]
  - Asthenia [Recovered/Resolved]
  - Vomiting [Recovered/Resolved]

NARRATIVE: CASE EVENT DATE: 20230618
